FAERS Safety Report 6106497-3 (Version None)
Quarter: 2009Q1

REPORT INFORMATION
  Report Type: 
  Country: None (occurrence: None)
  Receive Date: 20090306
  Receipt Date: 20090220
  Transmission Date: 20090719
  Serious: Yes (Hospitalization)
  Sender: FDA-Public Use
  Company Number: DE-GENENTECH-234246

PATIENT
  Sex: Female
  Weight: 65 kg

DRUGS (5)
  1. BEVACIZUMAB [Suspect]
     Indication: COLON CANCER
     Dosage: 330 MG, Q2W
     Route: 042
     Dates: start: 20061122, end: 20061215
  2. OXALIPLATIN [Suspect]
     Indication: COLON CANCER
     Dosage: 85 MG, Q2W
     Route: 042
     Dates: start: 20061122, end: 20061215
  3. LEUCOVORIN CALCIUM [Suspect]
     Indication: COLON CANCER
     Dosage: 400 MG/M2, Q2W
     Route: 042
     Dates: start: 20061122, end: 20061215
  4. FLUOROURACIL [Suspect]
     Indication: COLON CANCER
     Dosage: 1000 MG, Q2W
     Route: 042
     Dates: start: 20061122, end: 20061215
  5. FLUOROURACIL [Suspect]
     Dosage: 334 MG, UNK
     Route: 040

REACTIONS (1)
  - PSOAS ABSCESS [None]
